FAERS Safety Report 6857124-9 (Version None)
Quarter: 2010Q3

REPORT INFORMATION
  Report Type: 
  Country: None (occurrence: None)
  Receive Date: 20100719
  Receipt Date: 20100709
  Transmission Date: 20110219
  Serious: Yes (Hospitalization)
  Sender: FDA-Public Use
  Company Number: B0665557A

PATIENT
  Sex: Female
  Weight: 54.8 kg

DRUGS (6)
  1. RYTHMOL [Suspect]
     Indication: PRODUCT USED FOR UNKNOWN INDICATION
     Dosage: 600MG PER DAY
     Route: 048
  2. IMOVANE [Concomitant]
     Dosage: 7.5MG PER DAY
     Route: 048
     Dates: start: 20090801
  3. PRAVASTATIN SODIUM [Concomitant]
     Dosage: 20MG PER DAY
     Route: 048
  4. EFFEXOR [Concomitant]
     Dosage: 75MG PER DAY
     Route: 048
  5. MEMANTINE [Concomitant]
     Dosage: 15MG PER DAY
     Route: 048
  6. NULYTELY [Concomitant]
     Route: 048
     Dates: start: 20090801

REACTIONS (5)
  - AMNESIA [None]
  - DISORIENTATION [None]
  - NEUROSENSORY HYPOACUSIS [None]
  - ORTHOSTATIC HYPOTENSION [None]
  - VERTIGO [None]
